FAERS Safety Report 16119862 (Version 1)
Quarter: 2019Q1

REPORT INFORMATION
  Report Type: Spontaneous
  Country: US (occurrence: US)
  Receive Date: 20190326
  Receipt Date: 20190326
  Transmission Date: 20190418
  Serious: No
  Sender: FDA-Public Use
  Company Number: US-AKRON, INC.-2064669

PATIENT
  Sex: Female

DRUGS (1)
  1. ZIOPTAN [Suspect]
     Active Substance: TAFLUPROST
     Indication: INTRAOCULAR PRESSURE INCREASED
     Route: 047

REACTIONS (5)
  - Vision blurred [Unknown]
  - Drug ineffective [Unknown]
  - Urinary tract infection [Recovered/Resolved]
  - Dysphonia [Unknown]
  - Intraocular pressure increased [Unknown]
